FAERS Safety Report 6704760-6 (Version None)
Quarter: 2010Q2

REPORT INFORMATION
  Report Type: 
  Country: None (occurrence: None)
  Receive Date: 20100430
  Receipt Date: 20091229
  Transmission Date: 20101027
  Serious: No
  Sender: FDA-Public Use
  Company Number: US-ASTRAZENECA-2010SE00071

PATIENT
  Age: 691 Month
  Sex: Male
  Weight: 93 kg

DRUGS (3)
  1. NEXIUM [Suspect]
     Indication: GASTROOESOPHAGEAL REFLUX DISEASE
     Route: 048
  2. NEXIUM [Suspect]
     Route: 048
     Dates: start: 20080101
  3. TENORMIN [Concomitant]
     Indication: HYPERTENSION

REACTIONS (1)
  - BRADYKINESIA [None]
